FAERS Safety Report 23792008 (Version 2)
Quarter: 2024Q3

REPORT INFORMATION
  Report Type: Spontaneous
  Country: US (occurrence: US)
  Receive Date: 20240429
  Receipt Date: 20240916
  Transmission Date: 20241016
  Serious: No
  Sender: SANOFI AVENTIS
  Company Number: US-SA-SAC20240424000390

PATIENT
  Age: 54 Year
  Sex: Female

DRUGS (1)
  1. DUPIXENT [Suspect]
     Active Substance: DUPILUMAB
     Dosage: 300 MG, QOW
     Route: 058

REACTIONS (11)
  - Abdominal discomfort [Unknown]
  - Vomiting [Unknown]
  - Hypertension [Unknown]
  - Ear pain [Unknown]
  - Ear dryness [Unknown]
  - Exostosis [Unknown]
  - Headache [Recovering/Resolving]
  - Skin fissures [Unknown]
  - Dry skin [Unknown]
  - Rash [Unknown]
  - Therapeutic response decreased [Unknown]
